FAERS Safety Report 14115342 (Version 1)
Quarter: 2017Q4

REPORT INFORMATION
  Report Type: Not Available
  Country: US (occurrence: US)
  Receive Date: 20171023
  Receipt Date: 20171023
  Transmission Date: 20180321
  Serious: No
  Sender: FDA-Public Use
  Company Number: US-NEUROCRINE BIOSCIENCES INC.-2017NBI00910

PATIENT
  Age: 54 Year
  Sex: Female

DRUGS (12)
  1. INGREZZA [Suspect]
     Active Substance: VALBENAZINE
     Indication: PRODUCT USED FOR UNKNOWN INDICATION
     Route: 048
     Dates: start: 20170830
  2. LEVOTHYROXINE. [Concomitant]
     Active Substance: LEVOTHYROXINE
  3. IRON [Concomitant]
     Active Substance: IRON
  4. TRAMADOL. [Concomitant]
     Active Substance: TRAMADOL
  5. TETRABENAZINE. [Concomitant]
     Active Substance: TETRABENAZINE
  6. CLONAZEPAM. [Concomitant]
     Active Substance: CLONAZEPAM
  7. LYRICA [Concomitant]
     Active Substance: PREGABALIN
  8. PAROXETINE. [Concomitant]
     Active Substance: PAROXETINE
  9. DIAZEPAM. [Concomitant]
     Active Substance: DIAZEPAM
  10. TROPSIUM [Concomitant]
  11. TRAZODONE [Concomitant]
     Active Substance: TRAZODONE HYDROCHLORIDE
  12. XARELTO [Concomitant]
     Active Substance: RIVAROXABAN

REACTIONS (2)
  - Dyskinesia [Not Recovered/Not Resolved]
  - Adverse drug reaction [Unknown]

NARRATIVE: CASE EVENT DATE: 20170830
